FAERS Safety Report 16160962 (Version 2)
Quarter: 2019Q2

REPORT INFORMATION
  Report Type: Report from Study
  Country: JP (occurrence: JP)
  Receive Date: 20190405
  Receipt Date: 20190605
  Transmission Date: 20190711
  Serious: Yes (Death, Hospitalization, Other)
  Sender: FDA-Public Use
  Company Number: JP-AMGEN-JPNSP2018055262

PATIENT
  Age: 77 Year
  Sex: Female
  Weight: 48 kg

DRUGS (6)
  1. CARFILZOMIB [Suspect]
     Active Substance: CARFILZOMIB
     Indication: PLASMA CELL MYELOMA
     Dosage: 20 MG/M2, EVERYDAY
     Route: 041
     Dates: start: 20171024, end: 20171025
  2. DEXAMETHASONE. [Concomitant]
     Active Substance: DEXAMETHASONE
     Indication: PLASMA CELL MYELOMA
     Dosage: 8 MG (2017/10/24, 10/25, 10/31, 11/1, 11/7, 11/8, 11/23, 11/24, 11/30, 12/1, 12/7, 12/8, 12/21, 12/2
     Route: 065
     Dates: start: 20171024, end: 20171222
  3. CARFILZOMIB [Suspect]
     Active Substance: CARFILZOMIB
     Dosage: 56 MG/M2 (2017/10/31, 11/1, 11/7, 11/8)
     Route: 041
     Dates: start: 20171031, end: 20171108
  4. CARFILZOMIB [Suspect]
     Active Substance: CARFILZOMIB
     Dosage: 45 MG/M2 (2017/11/23, 11/24, 11/30, 12/1, 12/7, 12/8, 12/21, 12/22, 12/28, 12/29, 2018/1/4, 1/5)
     Route: 041
     Dates: start: 20171123, end: 20180105
  5. DEXAMETHASONE. [Concomitant]
     Active Substance: DEXAMETHASONE
     Dosage: 8 MG (12/28, 12/29, 2018/1/4, 1/5)
     Route: 065
     Dates: start: 20171228, end: 20180105
  6. ACICLOVIR [Concomitant]
     Active Substance: ACYCLOVIR
     Indication: ANTIVIRAL PROPHYLAXIS
     Dosage: 400 MG, EVERYDAY
     Route: 065

REACTIONS (2)
  - Myelodysplastic syndrome [Fatal]
  - Neutrophilic dermatosis [Recovered/Resolved]

NARRATIVE: CASE EVENT DATE: 20171113
